FAERS Safety Report 6919724-7 (Version None)
Quarter: 2010Q3

REPORT INFORMATION
  Report Type: 
  Country: None (occurrence: None)
  Receive Date: 20100811
  Receipt Date: 20100624
  Transmission Date: 20110219
  Serious: No
  Sender: FDA-Public Use
  Company Number: US-BRISTOL-MYERS SQUIBB COMPANY-15165368

PATIENT
  Age: 48 Year
  Sex: Female

DRUGS (7)
  1. IXEMPRA KIT [Suspect]
     Indication: BREAST CANCER METASTATIC
  2. XELODA [Concomitant]
  3. DARVOCET [Concomitant]
  4. DIFLUCAN [Concomitant]
  5. MEGACE [Concomitant]
  6. TRAMADOL HYDROCHLORIDE [Concomitant]
  7. COMPAZINE [Concomitant]

REACTIONS (2)
  - INCORRECT DRUG ADMINISTRATION RATE [None]
  - NO ADVERSE EVENT [None]
